FAERS Safety Report 8119471-2 (Version None)
Quarter: 2012Q1

REPORT INFORMATION
  Report Type: 
  Country: None (occurrence: None)
  Receive Date: 20120207
  Receipt Date: 20120125
  Transmission Date: 20120608
  Serious: Yes (Other)
  Sender: FDA-Public Use
  Company Number: PHEH2012US002334

PATIENT
  Sex: Female

DRUGS (13)
  1. GLIPIZIDE [Concomitant]
     Dosage: 05 MG, QD
     Route: 048
  2. MAGNESIUM OXIDE [Concomitant]
     Dosage: 400 MG, UNK
     Route: 048
  3. VITAMIN D [Concomitant]
     Dosage: 5000 UG, UNK
  4. AFINITOR [Suspect]
     Dosage: 05 MG, UNK
     Route: 048
     Dates: start: 20110609
  5. CYANOCOBALAMIN [Concomitant]
     Dosage: 1000 UG, QD
     Route: 048
  6. ZOMETA [Suspect]
     Indication: RENAL CELL CARCINOMA
  7. NORCO [Concomitant]
     Route: 048
  8. PRILOSEC [Concomitant]
     Dosage: 20 MG, UNK
     Route: 048
  9. PROCHLORPERAZINE MALEATE [Concomitant]
     Dosage: 10 MG PRN
  10. AFINITOR [Suspect]
     Indication: RENAL CELL CARCINOMA
     Dosage: 10 MG, UNK
     Route: 048
     Dates: start: 20110501, end: 20110527
  11. LEVOTHYROXINE SODIUM [Concomitant]
     Dosage: 25 UG, Q12H
     Route: 048
  12. ACETAMINOPHEN [Concomitant]
     Dosage: 500 MG, UNK
  13. SUTENT [Suspect]
     Indication: RENAL CELL CARCINOMA
     Dates: start: 20080701, end: 20110501

REACTIONS (21)
  - BENIGN BONE NEOPLASM [None]
  - METASTASES TO BONE [None]
  - METASTASES TO LUNG [None]
  - NEUTROPENIA [None]
  - VULVOVAGINAL PRURITUS [None]
  - SKIN DISCOLOURATION [None]
  - MYALGIA [None]
  - WEIGHT DECREASED [None]
  - NEOPLASM MALIGNANT [None]
  - TYPE 2 DIABETES MELLITUS [None]
  - ASPARTATE AMINOTRANSFERASE INCREASED [None]
  - GAIT DISTURBANCE [None]
  - LIVER FUNCTION TEST ABNORMAL [None]
  - HEPATIC STEATOSIS [None]
  - NEOPLASM PROGRESSION [None]
  - BACK PAIN [None]
  - BONE CYST [None]
  - EXOSTOSIS [None]
  - ALANINE AMINOTRANSFERASE INCREASED [None]
  - BLOOD GLUCOSE INCREASED [None]
  - COUGH [None]
